FAERS Safety Report 24238207 (Version 2)
Quarter: 2024Q3

REPORT INFORMATION
  Report Type: Other
  Country: US (occurrence: US)
  Receive Date: 20240822
  Receipt Date: 20240928
  Transmission Date: 20241017
  Serious: Yes (unspecified)
  Sender: RC OUTSOURCING, LLC, LOWELLVILLE, OH
  Company Number: US-RC Outsourcing, LLC-2159948

PATIENT
  Sex: Female

DRUGS (1)
  1. BEVACIZUMAB [Suspect]
     Active Substance: BEVACIZUMAB
     Dates: start: 20240726

REACTIONS (1)
  - Endophthalmitis [Not Recovered/Not Resolved]

NARRATIVE: CASE EVENT DATE: 20240729
